FAERS Safety Report 8739214 (Version 2)
Quarter: 2012Q4

REPORT INFORMATION
  Report Type: Spontaneous
  Country: GB (occurrence: None)
  Receive Date: 20120807
  Receipt Date: 20120906
  Transmission Date: 20130627
  Serious: Yes (Other)
  Sender: FDA-Public Use
  Company Number: GER/UKI/12/0025183

PATIENT
  Age: 15 Year
  Sex: Female

DRUGS (2)
  1. PROZAC (FLUOXETINE HYDROCHLORIDE) [Suspect]
     Indication: DRUG USE FOR UNKNOWN INDICATION
  2. SEROQUEL XL (QUETIAPINE FUMARATE) [Concomitant]

REACTIONS (2)
  - Amnesia [None]
  - Inappropriate schedule of drug administration [None]
